FAERS Safety Report 9838413 (Version 1)
Quarter: 2013Q4

REPORT INFORMATION
  Report Type: Spontaneous
  Country: US (occurrence: None)
  Receive Date: 20131206
  Receipt Date: 20131206
  Transmission Date: 20140711
  Serious: Yes (Hospitalization)
  Sender: FDA-Public Use
  Company Number: 374978

PATIENT
  Age: 43 Year
  Sex: Female
  Weight: 87.09 kg

DRUGS (1)
  1. NOVOLOG [Suspect]
     Dosage: SLIDING SCALE WITH BOLUS, SUBCUTAN.-PUMP
     Dates: start: 2010

REACTIONS (2)
  - Diabetic ketoacidosis [None]
  - Blood glucose increased [None]
